FAERS Safety Report 7337095-1 (Version None)
Quarter: 2011Q1

REPORT INFORMATION
  Report Type: 
  Country: None (occurrence: None)
  Receive Date: 20110224
  Receipt Date: 20110213
  Transmission Date: 20110831
  Serious: Yes (Death, Hospitalization, Other)
  Sender: FDA-Public Use
  Company Number: US-2011-10067

PATIENT
  Age: 66 Year
  Sex: Male
  Weight: 80 kg

DRUGS (2)
  1. SAMSCA [Suspect]
     Indication: OEDEMA
     Dosage: 15 MG MILLIGRAM(S), DAILY DOSE, ORAL
     Route: 048
     Dates: start: 20101216, end: 20101217
  2. SAMSCA [Suspect]
     Indication: CARDIAC DISORDER
     Dosage: 15 MG MILLIGRAM(S), DAILY DOSE, ORAL
     Route: 048
     Dates: start: 20101216, end: 20101217

REACTIONS (11)
  - WEIGHT DECREASED [None]
  - CONVULSION [None]
  - RALES [None]
  - UNRESPONSIVE TO STIMULI [None]
  - IATROGENIC INJURY [None]
  - HYPONATRAEMIA [None]
  - URINE OUTPUT DECREASED [None]
  - BLOOD SODIUM INCREASED [None]
  - LABORATORY TEST INTERFERENCE [None]
  - OEDEMA [None]
  - WHEEZING [None]
